FAERS Safety Report 15651217 (Version 1)
Quarter: 2018Q4

REPORT INFORMATION
  Report Type: Spontaneous
  Country: FR (occurrence: FR)
  Receive Date: 20181123
  Receipt Date: 20181123
  Transmission Date: 20190205
  Serious: Yes (Hospitalization)
  Sender: FDA-Public Use
  Company Number: FR-TEVA-2018-FR-977335

PATIENT
  Age: 70 Year
  Sex: Male

DRUGS (1)
  1. ACTIQ [Suspect]
     Active Substance: FENTANYL CITRATE
     Route: 002
     Dates: start: 2008

REACTIONS (5)
  - Intentional product misuse [Recovering/Resolving]
  - Tooth disorder [Recovering/Resolving]
  - Withdrawal syndrome [Recovering/Resolving]
  - Constipation [Recovering/Resolving]
  - Drug dependence [Recovering/Resolving]

NARRATIVE: CASE EVENT DATE: 2013
